FAERS Safety Report 6904361-0 (Version None)
Quarter: 2010Q3

REPORT INFORMATION
  Report Type: 
  Country: None (occurrence: None)
  Receive Date: 20100804
  Receipt Date: 20090429
  Transmission Date: 20110219
  Serious: No
  Sender: FDA-Public Use
  Company Number: US-PFIZER INC-2009183878

PATIENT
  Sex: Male

DRUGS (3)
  1. LYRICA [Suspect]
     Indication: CONVULSION PROPHYLAXIS
     Dosage: 225 MG, 2X/DAY
  2. LYRICA [Suspect]
     Indication: TUBEROUS SCLEROSIS
  3. LAMICTAL [Concomitant]
     Dosage: UNK

REACTIONS (2)
  - DIPLOPIA [None]
  - STRABISMUS [None]
